FAERS Safety Report 4379556-3 (Version None)
Quarter: 2004Q2

REPORT INFORMATION
  Report Type: 
  Country: None (occurrence: None)
  Receive Date: 20040614
  Receipt Date: 20040603
  Transmission Date: 20050107
  Serious: Yes (Life-Threatening, Hospitalization, Disabling)
  Sender: FDA-Public Use
  Company Number: 2004-05-0183

PATIENT
  Age: 70 Year
  Sex: Male
  Weight: 71.6683 kg

DRUGS (2)
  1. INTRON A (INTERFERON ALFA 2B RECOMBINANT) INJECTABLE [Suspect]
     Indication: MALIGNANT MELANOMA
     Dosage: 37 MIU QD INTRAVENOUS
     Route: 042
     Dates: start: 20040419, end: 20040430
  2. MAXZIDE [Concomitant]

REACTIONS (7)
  - BLOOD SODIUM DECREASED [None]
  - CONFUSIONAL STATE [None]
  - ERYTHEMA [None]
  - INAPPROPRIATE ANTIDIURETIC HORMONE SECRETION [None]
  - MENTAL STATUS CHANGES [None]
  - SKIN DESQUAMATION [None]
  - SPEECH DISORDER [None]
